FAERS Safety Report 16867448 (Version 1)
Quarter: 2019Q3

REPORT INFORMATION
  Report Type: Spontaneous
  Country: US (occurrence: US)
  Receive Date: 20190930
  Receipt Date: 20190930
  Transmission Date: 20191005
  Serious: No
  Sender: FDA-Public Use
  Company Number: US-MYLANLABS-2019M1087411

PATIENT
  Sex: Female
  Weight: 47 kg

DRUGS (1)
  1. FENTANYL TRANSDERMAL SYSTEM [Suspect]
     Active Substance: FENTANYL
     Indication: BACK PAIN
     Dosage: 1 EVERY 3 DAYS
     Route: 062

REACTIONS (3)
  - Hypokinesia [Recovered/Resolved]
  - Muscle twitching [Recovered/Resolved]
  - Product adhesion issue [Recovered/Resolved]
